FAERS Safety Report 21914904 (Version 2)
Quarter: 2023Q1

REPORT INFORMATION
  Report Type: Other
  Country: DE (occurrence: None)
  Receive Date: 20230126
  Receipt Date: 20230205
  Transmission Date: 20230418
  Serious: Yes (Hospitalization, Other)
  Sender: FDA-Public Use
  Company Number: DE-ROCHE-2798517

PATIENT
  Age: 41 Year
  Sex: Female

DRUGS (10)
  1. OCREVUS [Suspect]
     Active Substance: OCRELIZUMAB
     Indication: Multiple sclerosis
     Dosage: FIRST INITIAL INFUSION
     Route: 042
     Dates: start: 20210317
  2. ENALAPRIL [Concomitant]
     Active Substance: ENALAPRIL
  3. BISOPROLOL FUMARATE [Concomitant]
     Active Substance: BISOPROLOL FUMARATE
  4. PREGABALIN [Concomitant]
     Active Substance: PREGABALIN
  5. DARIFENACIN HYDROBROMIDE [Concomitant]
     Active Substance: DARIFENACIN HYDROBROMIDE
  6. OMEGA 3 [Concomitant]
     Active Substance: CAPSAICIN
  7. PROPIONIC ACID [Concomitant]
     Active Substance: PROPIONIC ACID
  8. BACLOFEN [Concomitant]
     Active Substance: BACLOFEN
  9. ENOXAPARIN SODIUM [Concomitant]
     Active Substance: ENOXAPARIN SODIUM
     Dosage: S.C
  10. HYGROTON [Concomitant]
     Active Substance: CHLORTHALIDONE

REACTIONS (35)
  - Abdominal pain upper [Recovered/Resolved]
  - Pneumonia [Unknown]
  - Pruritus [Recovered/Resolved]
  - Urinary tract infection [Recovered/Resolved]
  - Rash [Recovered/Resolved]
  - Drug intolerance [Recovered/Resolved]
  - Back pain [Not Recovered/Not Resolved]
  - Abdominal pain lower [Not Recovered/Not Resolved]
  - Oropharyngeal pain [Recovered/Resolved]
  - Fluid retention [Recovering/Resolving]
  - Cystitis [Recovered/Resolved]
  - Fall [Unknown]
  - Musculoskeletal pain [Recovered/Resolved]
  - Acne [Recovered/Resolved]
  - Gait disturbance [Not Recovered/Not Resolved]
  - Alopecia [Not Recovered/Not Resolved]
  - Feeling hot [Recovered/Resolved]
  - Ear pruritus [Recovered/Resolved]
  - Dyspnoea [Recovered/Resolved]
  - Throat tightness [Recovered/Resolved]
  - Throat irritation [Recovered/Resolved]
  - Cystitis noninfective [Recovered/Resolved]
  - Sensory disturbance [Recovering/Resolving]
  - Hypoaesthesia [Not Recovered/Not Resolved]
  - Nail disorder [Recovered/Resolved]
  - Nail bed bleeding [Unknown]
  - Limb injury [Unknown]
  - Panic attack [Unknown]
  - Muscle spasticity [Recovering/Resolving]
  - Musculoskeletal stiffness [Not Recovered/Not Resolved]
  - Asthenia [Not Recovered/Not Resolved]
  - Acne [Not Recovered/Not Resolved]
  - Malaise [Unknown]
  - Decubitus ulcer [Not Recovered/Not Resolved]
  - Limb injury [Not Recovered/Not Resolved]

NARRATIVE: CASE EVENT DATE: 20210317
